FAERS Safety Report 14691824 (Version 1)
Quarter: 2018Q1

REPORT INFORMATION
  Report Type: Spontaneous
  Country: US (occurrence: US)
  Receive Date: 20180329
  Receipt Date: 20180329
  Transmission Date: 20180509
  Serious: No
  Sender: FDA-Public Use
  Company Number: US-LUPIN PHARMACEUTICALS INC.-2018-00283

PATIENT
  Sex: Female

DRUGS (5)
  1. SERTRALINE HYDROCHLORIDE TABLETS USP, 25 MG [Suspect]
     Active Substance: SERTRALINE HYDROCHLORIDE
     Indication: PANIC ATTACK
     Dosage: 12.5 MG (1/2 TABLET), QD
     Route: 065
     Dates: start: 20170103, end: 20170213
  2. ATORVASTATIN [Concomitant]
     Active Substance: ATORVASTATIN
     Indication: PRODUCT USED FOR UNKNOWN INDICATION
     Dosage: 10 MG, QD
     Route: 065
  3. SERTRALINE HYDROCHLORIDE TABLETS USP, 25 MG [Suspect]
     Active Substance: SERTRALINE HYDROCHLORIDE
     Indication: ANXIETY
  4. LISINOPRIL. [Concomitant]
     Active Substance: LISINOPRIL
     Dosage: 10 MG, QD
     Route: 065
  5. AMLODIPINE BESILATE [Concomitant]
     Active Substance: AMLODIPINE BESYLATE
     Indication: PRODUCT USED FOR UNKNOWN INDICATION
     Dosage: 2.5 MG, QD
     Route: 065
     Dates: start: 20161107, end: 20170530

REACTIONS (4)
  - Dry mouth [Unknown]
  - Diarrhoea [Unknown]
  - Feeling jittery [Unknown]
  - Dizziness [Unknown]
